FAERS Safety Report 4675911-2 (Version None)
Quarter: 2005Q2

REPORT INFORMATION
  Report Type: 
  Country: None (occurrence: None)
  Receive Date: 20050527
  Receipt Date: 20050517
  Transmission Date: 20051028
  Serious: Yes (Death, Hospitalization)
  Sender: FDA-Public Use
  Company Number: FR-JNJFOC-20040803017

PATIENT
  Age: 65 Year
  Sex: Male
  Weight: 63 kg

DRUGS (15)
  1. REMICADE [Suspect]
     Dosage: 4TH INFUSION DURING HOSPITALISATION FROM 30-OCT-00 TO 01-NOV-00
     Route: 042
  2. REMICADE [Suspect]
     Dosage: 3RD INFUSION DURING HOSPITALISATION OF 28-AUG-00 TO 30-AUG-00
     Route: 042
  3. REMICADE [Suspect]
     Indication: RHEUMATOID ARTHRITIS
     Dosage: 1ST INFUSION
     Route: 042
  4. ENBREL [Suspect]
     Indication: RHEUMATOID ARTHRITIS
     Route: 058
     Dates: start: 20000316, end: 20000622
  5. ARAVA [Suspect]
     Indication: RHEUMATOID ARTHRITIS
     Route: 049
  6. COZAAR [Suspect]
     Indication: DRUG USE FOR UNKNOWN INDICATION
     Route: 049
  7. CHLORAMINOPHENE [Suspect]
     Indication: DRUG USE FOR UNKNOWN INDICATION
     Route: 049
  8. NOVATREX [Suspect]
     Indication: RHEUMATOID ARTHRITIS
     Route: 049
     Dates: start: 20000615, end: 20010101
  9. TOPALGIC [Concomitant]
  10. MOPRAL [Concomitant]
  11. CORTANCYL [Concomitant]
     Dosage: 9-15MG/DAY
  12. CARDENSIEL [Concomitant]
  13. LASILIX [Concomitant]
  14. KARDEGIC [Concomitant]
  15. ELISOR [Concomitant]

REACTIONS (13)
  - BACK PAIN [None]
  - BETA 2 MICROGLOBULIN INCREASED [None]
  - BLOOD DISORDER [None]
  - BLOOD LACTATE DEHYDROGENASE INCREASED [None]
  - CROHN'S DISEASE [None]
  - DIARRHOEA [None]
  - DRUG INTOLERANCE [None]
  - EPIDURITIS [None]
  - GENERAL PHYSICAL HEALTH DETERIORATION [None]
  - ILEUS [None]
  - NIGHT SWEATS [None]
  - OESOPHAGEAL ULCER [None]
  - T-CELL LYMPHOMA STAGE IV [None]
